FAERS Safety Report 15888069 (Version 1)
Quarter: 2019Q1

REPORT INFORMATION
  Report Type: Spontaneous
  Country: US (occurrence: US)
  Receive Date: 20190108
  Receipt Date: 20190108
  Transmission Date: 20190417
  Serious: Yes (Hospitalization)
  Sender: FDA-Public Use
  Company Number: None

PATIENT
  Age: 56 Year
  Sex: Male
  Weight: 80.5 kg

DRUGS (1)
  1. LOW DOSE DAUNORUBICIN [Suspect]
     Active Substance: DAUNORUBICIN
     Indication: ACUTE MYELOID LEUKAEMIA
     Dosage: ?          OTHER FREQUENCY:QD FOR 5 DAYS;?
     Route: 042
     Dates: start: 20181214, end: 20181217

REACTIONS (5)
  - Bacteraemia [None]
  - Device related infection [None]
  - Malaise [None]
  - Critical illness [None]
  - Septic shock [None]

NARRATIVE: CASE EVENT DATE: 20190102
